FAERS Safety Report 5393741-3 (Version None)
Quarter: 2007Q3

REPORT INFORMATION
  Report Type: 
  Country: None (occurrence: None)
  Receive Date: 20070719
  Receipt Date: 20070719
  Transmission Date: 20080115
  Serious: No
  Sender: FDA-Public Use
  Company Number: None

PATIENT
  Age: 27 Year
  Sex: Male
  Weight: 77.5 kg

DRUGS (9)
  1. COMPAZINE [Suspect]
  2. HYDROCOCONE/ACETAMINOPHEN [Concomitant]
  3. KETOROLAC TROMETHAMINE [Concomitant]
  4. APAP / BUTALBITAL / CFF [Concomitant]
  5. CARBAMAZEPINE [Concomitant]
  6. VALPROIC ACID [Concomitant]
  7. VERAPAML HCL [Concomitant]
  8. PSYLLIUM [Concomitant]
  9. PAROXETINE HCL [Concomitant]

REACTIONS (1)
  - ANXIETY [None]
